FAERS Safety Report 20556756 (Version 1)
Quarter: 2022Q1

REPORT INFORMATION
  Report Type: Spontaneous
  Country: GB (occurrence: GB)
  Receive Date: 20220307
  Receipt Date: 20220307
  Transmission Date: 20220424
  Serious: Yes (Life-Threatening, Other)
  Sender: FDA-Public Use
  Company Number: GB-MHRA-MED-202202230843192000-JXBKL

PATIENT
  Age: 49 Year
  Sex: Female
  Weight: 60 kg

DRUGS (1)
  1. MIRTAZAPINE [Suspect]
     Active Substance: MIRTAZAPINE
     Indication: Depression
     Dosage: 15 MILLIGRAM, ONCE A DAY
     Route: 065
     Dates: start: 20220101, end: 20220210

REACTIONS (8)
  - Medication error [Unknown]
  - Anger [Recovered/Resolved]
  - Irritability [Recovered/Resolved]
  - Feeling of despair [Recovering/Resolving]
  - Increased appetite [Recovered/Resolved]
  - Weight increased [Recovering/Resolving]
  - Suicidal ideation [Recovered/Resolved]
  - Confusional state [Recovering/Resolving]

NARRATIVE: CASE EVENT DATE: 20220107
